FAERS Safety Report 9999649 (Version 2)
Quarter: 2014Q1

REPORT INFORMATION
  Report Type: Report from Study
  Country: DE (occurrence: DE)
  Receive Date: 20140312
  Receipt Date: 20140312
  Transmission Date: 20141002
  Serious: Yes (Hospitalization)
  Sender: FDA-Public Use
  Company Number: DE-ABBVIE-09P-062-0577716-00

PATIENT
  Age: 24 Year
  Sex: Male
  Weight: 100 kg

DRUGS (2)
  1. HUMIRA [Suspect]
     Indication: CROHN^S DISEASE
     Route: 058
     Dates: start: 20081030, end: 20090511
  2. BUDESONID [Concomitant]
     Indication: CROHN^S DISEASE
     Dates: start: 200708

REACTIONS (3)
  - Crohn^s disease [Recovered/Resolved]
  - Anal abscess [Recovered/Resolved]
  - Anal fistula [Recovered/Resolved]
